FAERS Safety Report 7630856-0 (Version None)
Quarter: 2011Q3

REPORT INFORMATION
  Report Type: 
  Country: None (occurrence: None)
  Receive Date: 20110723
  Receipt Date: 20110713
  Transmission Date: 20111222
  Serious: Yes (Hospitalization)
  Sender: FDA-Public Use
  Company Number: BE-ABBOTT-10P-013-0692916-00

PATIENT
  Sex: Female
  Weight: 52 kg

DRUGS (10)
  1. HUMIRA [Suspect]
     Indication: CROHN'S DISEASE
     Dosage: BASELINE
     Route: 058
     Dates: start: 20090224, end: 20090301
  2. OMEPRAZOLE [Concomitant]
     Indication: ABDOMINAL PAIN UPPER
     Dates: start: 20091110, end: 20100101
  3. IMODIUM [Concomitant]
     Indication: DIARRHOEA
     Dates: start: 20091110, end: 20100101
  4. NEXIUM [Concomitant]
     Indication: PROPHYLAXIS AGAINST GASTROINTESTINAL ULCER
     Route: 048
     Dates: end: 20110101
  5. SACCHAROMYCES BOULARDIL LYOPHYLIZED [Concomitant]
     Indication: DIARRHOEA
     Dates: end: 20110101
  6. ACECLOFENAC [Concomitant]
     Indication: PYREXIA
  7. HUMIRA [Suspect]
     Route: 058
     Dates: start: 20101019, end: 20101120
  8. HUMIRA [Suspect]
     Dates: end: 20101001
  9. ACECLOFENAC [Concomitant]
     Indication: PAIN
  10. NEXIUM [Concomitant]
     Indication: PROPHYLAXIS

REACTIONS (1)
  - CEREBROVASCULAR ACCIDENT [None]
